FAERS Safety Report 5512202-1 (Version None)
Quarter: 2007Q4

REPORT INFORMATION
  Report Type: 
  Country: None (occurrence: None)
  Receive Date: 20071112
  Receipt Date: 20071105
  Transmission Date: 20080405
  Serious: Yes (Other)
  Sender: FDA-Public Use
  Company Number: PHEH2007US14409

PATIENT
  Sex: Male

DRUGS (2)
  1. ENABLEX [Suspect]
  2. FLOMAX [Concomitant]

REACTIONS (4)
  - DEPRESSED MOOD [None]
  - DIZZINESS [None]
  - HYPOTENSION [None]
  - SYNCOPE [None]
